FAERS Safety Report 8245872-8 (Version None)
Quarter: 2012Q1

REPORT INFORMATION
  Report Type: 
  Country: None (occurrence: None)
  Receive Date: 20120328
  Receipt Date: 20120328
  Transmission Date: 20120608
  Serious: No
  Sender: FDA-Public Use
  Company Number: None

PATIENT
  Sex: Female
  Weight: 68.9467 kg

DRUGS (1)
  1. ENBREL [Suspect]
     Dosage: 50MG 2X PER WEEK FOR 30 DAYS INJECTION
     Route: 042

REACTIONS (2)
  - ASTHENIA [None]
  - RASH [None]
